FAERS Safety Report 9203395 (Version 1)
Quarter: 2013Q2

REPORT INFORMATION
  Report Type: Spontaneous
  Country: US (occurrence: US)
  Receive Date: 20130402
  Receipt Date: 20130402
  Transmission Date: 20140414
  Serious: No
  Sender: FDA-Public Use
  Company Number: US-009507513-1304USA000140

PATIENT
  Age: 17 Year
  Sex: Female

DRUGS (1)
  1. PREGNYL [Suspect]
     Indication: OVULATION INDUCTION

REACTIONS (1)
  - Ovarian hyperstimulation syndrome [Unknown]
